FAERS Safety Report 7528180-X (Version None)
Quarter: 2011Q2

REPORT INFORMATION
  Report Type: 
  Country: None (occurrence: None)
  Receive Date: 20110607
  Receipt Date: 20100922
  Transmission Date: 20111010
  Serious: No
  Sender: FDA-Public Use
  Company Number: US-ASTRAZENECA-2010SE45635

PATIENT
  Age: 61 Year
  Sex: Male

DRUGS (3)
  1. PRILOSEC [Suspect]
     Dosage: UNKNOWN
     Route: 048
  2. PRILOSEC OTC [Suspect]
     Route: 048
     Dates: start: 20100904, end: 20100904
  3. PRILOSEC [Suspect]
     Dosage: PAST DRUG HISTORY
     Route: 048

REACTIONS (2)
  - LETHARGY [None]
  - SOMNOLENCE [None]
